FAERS Safety Report 24085936 (Version 1)
Quarter: 2024Q3

REPORT INFORMATION
  Report Type: Spontaneous
  Country: US (occurrence: US)
  Receive Date: 20240712
  Receipt Date: 20240712
  Transmission Date: 20241017
  Serious: Yes (Other)
  Sender: ELI LILLY AND CO
  Company Number: US-ELI_LILLY_AND_COMPANY-US202407002290

PATIENT
  Age: 58 Year
  Sex: Male

DRUGS (1)
  1. HUMALOG [Suspect]
     Active Substance: INSULIN LISPRO
     Indication: Diabetes mellitus
     Dosage: 140 U, DAILY
     Route: 065

REACTIONS (4)
  - Cerebrovascular accident [Unknown]
  - Neuropathy peripheral [Not Recovered/Not Resolved]
  - Thyroid disorder [Unknown]
  - Cardiac disorder [Unknown]
